FAERS Safety Report 25156204 (Version 1)
Quarter: 2025Q2

REPORT INFORMATION
  Report Type: Spontaneous
  Country: US (occurrence: US)
  Receive Date: 20250403
  Receipt Date: 20250403
  Transmission Date: 20250716
  Serious: Yes (Other)
  Sender: FRESENIUS KABI
  Company Number: US-FreseniusKabi-FK202505023

PATIENT
  Age: 30 Year
  Sex: Female

DRUGS (8)
  1. PROPOFOL [Suspect]
     Active Substance: PROPOFOL
     Indication: Induction and maintenance of anaesthesia
  2. FLUOROURACIL [Concomitant]
     Active Substance: FLUOROURACIL
     Indication: Neoadjuvant therapy
  3. OXALIPLATIN [Concomitant]
     Active Substance: OXALIPLATIN
     Indication: Neoadjuvant therapy
  4. LEUCOVORIN [Concomitant]
     Active Substance: LEUCOVORIN\LEUCOVORIN CALCIUM
     Indication: Neoadjuvant therapy
  5. REMIFENTANIL [Concomitant]
     Active Substance: REMIFENTANIL
     Indication: Induction and maintenance of anaesthesia
  6. LIDOCAINE [Concomitant]
     Active Substance: LIDOCAINE
     Indication: Induction and maintenance of anaesthesia
  7. ROCURONIUM [Concomitant]
     Active Substance: ROCURONIUM BROMIDE
     Indication: Pain
  8. FENTANYL [Concomitant]
     Active Substance: FENTANYL
     Indication: Pain

REACTIONS (1)
  - Electroencephalogram abnormal [Recovered/Resolved]
